FAERS Safety Report 5170899-2 (Version None)
Quarter: 2006Q4

REPORT INFORMATION
  Report Type: 
  Country: None (occurrence: None)
  Receive Date: 20061205
  Receipt Date: 20061205
  Transmission Date: 20070319
  Serious: Yes (Hospitalization)
  Sender: FDA-Public Use
  Company Number: None

PATIENT
  Age: 73 Year
  Sex: Male
  Weight: 87.6 kg

DRUGS (1)
  1. LITHIUM CARBONATE [Suspect]
     Indication: BIPOLAR DISORDER
     Dosage: 300MG   QD   PO
     Route: 048

REACTIONS (5)
  - BLOOD CREATININE ABNORMAL [None]
  - DYSARTHRIA [None]
  - LEUKOCYTOSIS [None]
  - ORAL INTAKE REDUCED [None]
  - THERAPEUTIC AGENT TOXICITY [None]
